FAERS Safety Report 22097428 (Version 3)
Quarter: 2023Q2

REPORT INFORMATION
  Report Type: Spontaneous
  Country: DE (occurrence: DE)
  Receive Date: 20230315
  Receipt Date: 20230516
  Transmission Date: 20230722
  Serious: Yes (Hospitalization, Other)
  Sender: FDA-Public Use
  Company Number: DE-JNJFOC-20230132438

PATIENT
  Age: 81 Year
  Sex: Female
  Weight: 63 kg

DRUGS (46)
  1. LENALIDOMIDE [Suspect]
     Active Substance: LENALIDOMIDE
     Indication: Plasma cell myeloma
     Dosage: 25 MILLIGRAM 21 PER CYCLE
     Route: 048
     Dates: start: 20221031, end: 20221120
  2. LENALIDOMIDE [Suspect]
     Active Substance: LENALIDOMIDE
     Dosage: 20 MILLIGRAM 21 PER CYCLE
     Route: 048
     Dates: start: 20221128, end: 20221218
  3. LENALIDOMIDE [Suspect]
     Active Substance: LENALIDOMIDE
     Dosage: 20 MILLIGRAM 21 PER CYCLE
     Route: 048
     Dates: start: 20221226, end: 20230115
  4. LENALIDOMIDE [Suspect]
     Active Substance: LENALIDOMIDE
     Dosage: UNK
     Route: 048
     Dates: start: 20230209
  5. LENALIDOMIDE [Suspect]
     Active Substance: LENALIDOMIDE
     Dosage: CYCLE 4
     Route: 048
     Dates: start: 20230202, end: 20230222
  6. LENALIDOMIDE [Suspect]
     Active Substance: LENALIDOMIDE
     Dosage: 20 MILLIGRAM (CYCLE 5)
     Route: 048
     Dates: start: 20230202
  7. DARATUMUMAB [Suspect]
     Active Substance: DARATUMUMAB
     Indication: Plasma cell myeloma
     Dosage: 8 MILLIGRAM/KILOGRAM, EVERY WEEK
     Route: 042
     Dates: start: 20221031
  8. DARATUMUMAB [Suspect]
     Active Substance: DARATUMUMAB
     Dosage: 8 MILLIGRAM/KILOGRAM, EVERY WEEK
     Route: 042
     Dates: start: 20221104
  9. DARATUMUMAB [Suspect]
     Active Substance: DARATUMUMAB
     Dosage: 16 MILLIGRAM/KILOGRAM, EVERY WEEK
     Route: 042
     Dates: start: 20221116
  10. DARATUMUMAB [Suspect]
     Active Substance: DARATUMUMAB
     Dosage: 16 MILLIGRAM/KILOGRAM, EVERY WEEK
     Route: 042
     Dates: start: 20221124
  11. DARATUMUMAB [Suspect]
     Active Substance: DARATUMUMAB
     Dosage: 16 MILLIGRAM/KILOGRAM, EVERY WEEK
     Route: 042
     Dates: start: 20221201
  12. DARATUMUMAB [Suspect]
     Active Substance: DARATUMUMAB
     Dosage: 16 MILLIGRAM/KILOGRAM, EVERY WEEK
     Route: 042
     Dates: start: 20221207
  13. DARATUMUMAB [Suspect]
     Active Substance: DARATUMUMAB
     Dosage: 16 MILLIGRAM/KILOGRAM, EVERY WEEK
     Route: 042
     Dates: start: 20221214
  14. DARATUMUMAB [Suspect]
     Active Substance: DARATUMUMAB
     Dosage: 16 MILLIGRAM/KILOGRAM, EVERY WEEK
     Route: 042
     Dates: start: 20221223
  15. DARATUMUMAB [Suspect]
     Active Substance: DARATUMUMAB
     Dosage: 16 MILLIGRAM/KILOGRAM, EVERY WEEK
     Route: 042
     Dates: start: 20221230
  16. DARATUMUMAB [Suspect]
     Active Substance: DARATUMUMAB
     Dosage: 16 MILLIGRAM/KILOGRAM, EVERY WEEK
     Route: 042
     Dates: start: 20230112
  17. DARATUMUMAB [Suspect]
     Active Substance: DARATUMUMAB
     Dosage: 16 MILLIGRAM/KILOGRAM, EVERY WEEK
     Route: 042
     Dates: start: 20230127
  18. DARATUMUMAB [Suspect]
     Active Substance: DARATUMUMAB
     Dosage: 16 MILLIGRAM/KILOGRAM, EVERY WEEK
     Route: 042
     Dates: start: 20230209
  19. DEXAMETHASONE [Suspect]
     Active Substance: DEXAMETHASONE
     Indication: Plasma cell myeloma
     Dosage: 4 PER CYCLE
     Route: 042
     Dates: start: 20221031
  20. DEXAMETHASONE [Suspect]
     Active Substance: DEXAMETHASONE
     Dosage: 4 PER CYCLE
     Route: 042
     Dates: start: 20221031
  21. DEXAMETHASONE [Suspect]
     Active Substance: DEXAMETHASONE
     Dosage: 4 PER CYCLE
     Route: 042
     Dates: start: 20221104
  22. DEXAMETHASONE [Suspect]
     Active Substance: DEXAMETHASONE
     Dosage: 4 PER CYCLE
     Route: 042
     Dates: start: 20221116
  23. DEXAMETHASONE [Suspect]
     Active Substance: DEXAMETHASONE
     Dosage: 4 PER CYCLE
     Route: 042
     Dates: start: 20221124
  24. DEXAMETHASONE [Suspect]
     Active Substance: DEXAMETHASONE
     Dosage: 4 PER CYCLE
     Route: 042
     Dates: start: 20221207
  25. DEXAMETHASONE [Suspect]
     Active Substance: DEXAMETHASONE
     Dosage: 4 PER CYCLE
     Route: 042
     Dates: start: 20221214
  26. DEXAMETHASONE [Suspect]
     Active Substance: DEXAMETHASONE
     Dosage: 4 PER CYCLE
     Route: 042
     Dates: start: 20221223
  27. DEXAMETHASONE [Suspect]
     Active Substance: DEXAMETHASONE
     Dosage: 4 PER CYCLE
     Route: 042
     Dates: start: 20221230
  28. DEXAMETHASONE [Suspect]
     Active Substance: DEXAMETHASONE
     Dosage: 4 PER CYCLE
     Route: 042
     Dates: start: 20230112
  29. DEXAMETHASONE [Suspect]
     Active Substance: DEXAMETHASONE
     Dosage: UNK
     Route: 042
     Dates: start: 20230127
  30. DEXAMETHASONE [Suspect]
     Active Substance: DEXAMETHASONE
     Dosage: 20 MILLIGRAM
     Route: 065
     Dates: start: 20230209
  31. DEXAMETHASONE [Suspect]
     Active Substance: DEXAMETHASONE
     Dosage: 20 MILLIGRAM
     Route: 065
     Dates: start: 20230220
  32. DEXAMETHASONE [Suspect]
     Active Substance: DEXAMETHASONE
     Dosage: 20 MILLIGRAM
     Route: 065
     Dates: start: 20230309
  33. DEXAMETHASONE [Suspect]
     Active Substance: DEXAMETHASONE
     Dosage: 20 MILLIGRAM
     Route: 065
     Dates: start: 20230320
  34. ASPIRIN [Concomitant]
     Active Substance: ASPIRIN
     Indication: Prophylaxis
     Dosage: 100 MILLIGRAM, AS NECESSARY(PM AS NEEDED)
     Route: 048
     Dates: start: 20221031
  35. ACYCLOVIR [Concomitant]
     Active Substance: ACYCLOVIR
     Indication: Prophylaxis
     Dosage: 400 MILLIGRAM, ONCE A DAY
     Route: 048
     Dates: start: 20221031
  36. AMITRIPTYLINE [Concomitant]
     Active Substance: AMITRIPTYLINE
     Indication: Polymyalgia rheumatica
     Dosage: 25 MILLIGRAM, PM (AS NEEDED)
     Route: 048
     Dates: start: 20221124
  37. DIMETHINDENE [Concomitant]
     Active Substance: DIMETHINDENE
     Indication: Prophylaxis
     Dosage: 1 MILLIGRAM, EVERY WEEK
     Route: 042
     Dates: start: 20221031
  38. HYDROMORPHONE [Concomitant]
     Active Substance: HYDROMORPHONE
     Indication: Polymyalgia rheumatica
     Dosage: 4 MILLIGRAM, PM (AS NEEDED)
     Route: 048
     Dates: start: 20221124
  39. HYDROMORPHONE [Concomitant]
     Active Substance: HYDROMORPHONE
     Dosage: 2.6 MILLIGRAM, PM (AS NEEDED)
     Route: 048
     Dates: start: 20221124
  40. HYDROMORPHONE [Concomitant]
     Active Substance: HYDROMORPHONE
     Dosage: 2 MILLIGRAM PM (AS NEEDED)
     Route: 048
     Dates: start: 20221124
  41. METAMIZOLE [Concomitant]
     Active Substance: METAMIZOLE
     Indication: Polymyalgia rheumatica
     Dosage: 500 MILLIGRAM, PM (AS NEEDED)
     Route: 048
     Dates: start: 20221124
  42. METOCLOPRAMIDE [Concomitant]
     Active Substance: METOCLOPRAMIDE
     Indication: Prophylaxis
     Dosage: 10 MILLIGRAM
     Route: 048
     Dates: start: 202301
  43. NYSTATIN [Concomitant]
     Active Substance: NYSTATIN
     Indication: Chronic gastritis
     Dosage: 1 INTERNATIONAL UNIT, FOUR TIMES/DAY
     Route: 048
     Dates: start: 20230127
  44. PANTOPRAZOLE [Concomitant]
     Active Substance: PANTOPRAZOLE
     Indication: Prophylaxis
     Dosage: 40 MILLIGRAM
     Route: 048
     Dates: start: 20230117
  45. ACETAMINOPHEN [Concomitant]
     Active Substance: ACETAMINOPHEN
     Indication: Prophylaxis
     Dosage: 500 MILLIGRAM PER CYCLE
     Route: 048
     Dates: start: 20221031
  46. SPIRONOLACTONE [Concomitant]
     Active Substance: SPIRONOLACTONE
     Indication: Coronary artery disease
     Dosage: 25 MILLIGRAM
     Route: 048
     Dates: start: 20230127

REACTIONS (4)
  - Vomiting [Recovered/Resolved]
  - Nausea [Not Recovered/Not Resolved]
  - Oesophageal candidiasis [Recovered/Resolved]
  - Rib fracture [Recovered/Resolved]

NARRATIVE: CASE EVENT DATE: 20230101
